FAERS Safety Report 8277822-2 (Version None)
Quarter: 2012Q2

REPORT INFORMATION
  Report Type: 
  Country: None (occurrence: None)
  Receive Date: 20120412
  Receipt Date: 20120404
  Transmission Date: 20120825
  Serious: Yes (Other)
  Sender: FDA-Public Use
  Company Number: PR-BAYER-2010-007950

PATIENT
  Age: 31 Year
  Sex: Female
  Weight: 68.934 kg

DRUGS (2)
  1. YASMIN [Suspect]
     Dosage: UNK
     Route: 048
     Dates: start: 20070601, end: 20070801
  2. YAZ [Suspect]
     Dosage: UNK
     Route: 048
     Dates: start: 20070601, end: 20070801

REACTIONS (5)
  - CHOLESTASIS [None]
  - GALLBLADDER DISORDER [None]
  - PAIN [None]
  - CHOLECYSTITIS CHRONIC [None]
  - GALLBLADDER PAIN [None]
